FAERS Safety Report 4699601-5 (Version None)
Quarter: 2005Q2

REPORT INFORMATION
  Report Type: 
  Country: None (occurrence: None)
  Receive Date: 20050623
  Receipt Date: 20050610
  Transmission Date: 20051028
  Serious: Yes (Hospitalization, Other)
  Sender: FDA-Public Use
  Company Number: 2005088140

PATIENT
  Age: 12 Year
  Sex: Male
  Weight: 71 kg

DRUGS (15)
  1. HYDROCORTISONE SODIUM SUCCINATE [Suspect]
     Indication: ILL-DEFINED DISORDER
     Dosage: 10 MG, INTRAVENOUS
     Route: 042
     Dates: start: 20050316
  2. ONCASPAR [Suspect]
     Indication: ACUTE LYMPHOCYTIC LEUKAEMIA
     Dosage: 4100 MG, INTRAVENOUS
     Route: 042
     Dates: start: 20050314
  3. DECTANCYL (DEXAMETHASONE ACETATE) [Suspect]
     Indication: ILL-DEFINED DISORDER
     Dosage: 30 MG, ORAL
     Route: 048
     Dates: start: 20050311
  4. VALACYCLOVIR HCL [Concomitant]
  5. VINCRISTINE SULFATE [Concomitant]
  6. OMEPRAZOLE [Concomitant]
  7. ACETAMINOPHEN [Concomitant]
  8. ACETYLSALICYLATE LYSINE (ACETYLSALICYLATE LYSINE) [Concomitant]
  9. FLUINDIONE (FLUINDIONE) [Concomitant]
  10. FLUCONAZOLE [Concomitant]
  11. ONDANSETRON HCL [Concomitant]
  12. RETINOL (RETINOL) [Concomitant]
  13. IFOSFAMIDE [Concomitant]
  14. VINDESINE SULFATE (VINDESINE SULFATE) [Concomitant]
  15. DAUNORUBICIN HYDROCHLORIDE [Concomitant]

REACTIONS (3)
  - GRAND MAL CONVULSION [None]
  - HYPOGLYCAEMIA [None]
  - PYREXIA [None]
